FAERS Safety Report 8877128 (Version 1)
Quarter: 2012Q4

REPORT INFORMATION
  Report Type: 
  Country: US (occurrence: US)
  Receive Date: 20121023
  Receipt Date: 20121023
  Transmission Date: 20130627
  Serious: Yes (Other)
  Sender: FDA-Public Use
  Company Number: US-GILEAD-2012-0063347

PATIENT
  Sex: Male

DRUGS (2)
  1. RANEXA [Suspect]
     Indication: MYOCARDIAL ISCHAEMIA
     Dosage: 500 mg, UNK
     Route: 048
     Dates: start: 20120913, end: 20120919
  2. RANEXA [Suspect]
     Dosage: 1000 mg, UNK
     Route: 048
     Dates: start: 20120920, end: 20120924

REACTIONS (4)
  - Deafness [Unknown]
  - Chest pain [Unknown]
  - Headache [Unknown]
  - Tinnitus [Unknown]
